FAERS Safety Report 6025677-9 (Version None)
Quarter: 2008Q4

REPORT INFORMATION
  Report Type: 
  Country: None (occurrence: None)
  Receive Date: 20081231
  Receipt Date: 20081219
  Transmission Date: 20090506
  Serious: Yes (Hospitalization)
  Sender: FDA-Public Use
  Company Number: JP-GENENTECH-258452

PATIENT
  Sex: Female
  Weight: 77.9 kg

DRUGS (11)
  1. BEVACIZUMAB [Suspect]
     Indication: BREAST CANCER METASTATIC
     Dosage: 779 MG, Q2W
     Route: 042
     Dates: start: 20071130
  2. BEVACIZUMAB [Suspect]
     Dosage: 650 MG, Q2W
     Route: 042
     Dates: start: 20080319, end: 20080324
  3. PACLITAXEL [Suspect]
     Indication: BREAST CANCER METASTATIC
     Dosage: 158 MG, 1/WEEK
     Route: 042
     Dates: start: 20071130
  4. PACLITAXEL [Suspect]
     Dosage: 147 MG, 1/WEEK
     Route: 042
     Dates: start: 20080319, end: 20080324
  5. OXYCODONE HCL [Concomitant]
     Indication: DRUG USE FOR UNKNOWN INDICATION
     Dates: start: 20071203
  6. MORPHINE HYDROCHLORIDE [Concomitant]
     Indication: DRUG USE FOR UNKNOWN INDICATION
  7. LOXOPROFEN [Concomitant]
     Indication: DRUG USE FOR UNKNOWN INDICATION
     Dates: start: 20080123
  8. ACETAMINOPHEN [Concomitant]
     Indication: DRUG USE FOR UNKNOWN INDICATION
     Dates: start: 20071231
  9. ALPRAZOLAM [Concomitant]
     Indication: DRUG USE FOR UNKNOWN INDICATION
     Dates: start: 20080126
  10. SODIUM GUALENATE [Concomitant]
     Indication: DRUG USE FOR UNKNOWN INDICATION
     Dates: start: 20080213
  11. DEXAMETHASONE [Concomitant]
     Indication: DRUG USE FOR UNKNOWN INDICATION
     Dates: start: 20080213

REACTIONS (2)
  - DELIRIUM [None]
  - DISEASE PROGRESSION [None]
